FAERS Safety Report 20720436 (Version 6)
Quarter: 2022Q3

REPORT INFORMATION
  Report Type: Report from Study
  Country: US (occurrence: US)
  Receive Date: 20220418
  Receipt Date: 20220919
  Transmission Date: 20221027
  Serious: Yes (Hospitalization)
  Sender: FDA-Public Use
  Company Number: US-TAKEDA-2021TUS067974

PATIENT
  Age: 59 Year
  Sex: Male
  Weight: 88.435 kg

DRUGS (16)
  1. TEDUGLUTIDE [Suspect]
     Active Substance: TEDUGLUTIDE
     Indication: Short-bowel syndrome
     Dosage: 30 DOSAGE FORM, QD
     Route: 058
     Dates: start: 20210823
  2. TEDUGLUTIDE [Suspect]
     Active Substance: TEDUGLUTIDE
     Indication: Short-bowel syndrome
     Dosage: 30 DOSAGE FORM, QD
     Route: 058
     Dates: start: 20210823
  3. TEDUGLUTIDE [Suspect]
     Active Substance: TEDUGLUTIDE
     Indication: Short-bowel syndrome
     Dosage: 30 DOSAGE FORM, QD
     Route: 058
     Dates: start: 20210823
  4. TEDUGLUTIDE [Suspect]
     Active Substance: TEDUGLUTIDE
     Indication: Short-bowel syndrome
     Dosage: 30 DOSAGE FORM, QD
     Route: 058
     Dates: start: 20210823
  5. TEDUGLUTIDE [Suspect]
     Active Substance: TEDUGLUTIDE
     Indication: Crohn^s disease
     Dosage: 2.15 MILLIGRAM, QD
     Route: 058
     Dates: end: 20220531
  6. TEDUGLUTIDE [Suspect]
     Active Substance: TEDUGLUTIDE
     Indication: Crohn^s disease
     Dosage: 2.15 MILLIGRAM, QD
     Route: 058
     Dates: end: 20220531
  7. TEDUGLUTIDE [Suspect]
     Active Substance: TEDUGLUTIDE
     Indication: Crohn^s disease
     Dosage: 2.15 MILLIGRAM, QD
     Route: 058
     Dates: end: 20220531
  8. TEDUGLUTIDE [Suspect]
     Active Substance: TEDUGLUTIDE
     Indication: Crohn^s disease
     Dosage: 2.15 MILLIGRAM, QD
     Route: 058
     Dates: end: 20220531
  9. TEDUGLUTIDE [Suspect]
     Active Substance: TEDUGLUTIDE
     Dosage: 2.15 MILLIGRAM, QD
     Route: 058
     Dates: start: 20210908
  10. TEDUGLUTIDE [Suspect]
     Active Substance: TEDUGLUTIDE
     Dosage: 2.15 MILLIGRAM, QD
     Route: 058
     Dates: start: 20210908
  11. TEDUGLUTIDE [Suspect]
     Active Substance: TEDUGLUTIDE
     Dosage: 2.15 MILLIGRAM, QD
     Route: 058
     Dates: start: 20210908
  12. TEDUGLUTIDE [Suspect]
     Active Substance: TEDUGLUTIDE
     Dosage: 2.15 MILLIGRAM, QD
     Route: 058
     Dates: start: 20210908
  13. TEDUGLUTIDE [Suspect]
     Active Substance: TEDUGLUTIDE
     Dosage: 2.15 MILLIGRAM, QD
     Route: 058
  14. TEDUGLUTIDE [Suspect]
     Active Substance: TEDUGLUTIDE
     Dosage: 2.15 MILLIGRAM, QD
     Route: 058
  15. TEDUGLUTIDE [Suspect]
     Active Substance: TEDUGLUTIDE
     Dosage: 2.15 MILLIGRAM, QD
     Route: 058
  16. TEDUGLUTIDE [Suspect]
     Active Substance: TEDUGLUTIDE
     Dosage: 2.15 MILLIGRAM, QD
     Route: 058

REACTIONS (10)
  - Hospitalisation [Not Recovered/Not Resolved]
  - Ileostomy closure [Unknown]
  - Post procedural complication [Unknown]
  - Weight decreased [Recovering/Resolving]
  - Needle issue [Unknown]
  - Product availability issue [Not Recovered/Not Resolved]
  - Inappropriate schedule of product administration [Not Recovered/Not Resolved]
  - Product dose omission issue [Unknown]
  - Therapy interrupted [Unknown]
  - Insurance issue [Unknown]

NARRATIVE: CASE EVENT DATE: 20220408
